FAERS Safety Report 7425362-2 (Version None)
Quarter: 2011Q2

REPORT INFORMATION
  Report Type: 
  Country: None (occurrence: None)
  Receive Date: 20110420
  Receipt Date: 20110411
  Transmission Date: 20111010
  Serious: Yes (Hospitalization)
  Sender: FDA-Public Use
  Company Number: US-EISAI INC-E7389-01010-CLI-US

PATIENT
  Sex: Female
  Weight: 81 kg

DRUGS (19)
  1. MUCINEX DM [Concomitant]
     Indication: COUGH
     Dosage: 600/30MG
  2. ASCORBIC ACID [Concomitant]
     Indication: IMMUNE SYSTEM DISORDER
  3. VITAMIN E [Concomitant]
     Indication: IMMUNE SYSTEM DISORDER
  4. BIOTIN [Concomitant]
  5. E7389 (BOLD) [Suspect]
     Indication: BREAST CANCER
     Route: 041
     Dates: start: 20100910, end: 20101209
  6. NIFEDIAC [Concomitant]
     Indication: BLOOD PRESSURE
  7. SPIRONOLACTONE [Concomitant]
     Indication: BLOOD POTASSIUM
     Dates: start: 20100824
  8. ALPHA LIPOIC ACID [Concomitant]
     Indication: IMMUNE SYSTEM DISORDER
  9. ADVIL LIQUI-GELS [Concomitant]
     Indication: PAIN
  10. CHERATUSSIN AC [Concomitant]
     Indication: COUGH
     Dosage: 100/10MG
  11. PROBIOTIC [Concomitant]
     Indication: IMMUNE SYSTEM DISORDER
  12. ZINC LOZENGES [Concomitant]
     Indication: IMMUNE SYSTEM DISORDER
  13. LACTULOSE [Concomitant]
     Indication: CONSTIPATION
     Dosage: 10GM
  14. MULTI-VITAMIN [Concomitant]
     Indication: VITAMIN SUPPLEMENTATION
     Dosage: 1 TBSP
  15. SOTALOL [Concomitant]
  16. SELENIUM [Concomitant]
     Indication: IMMUNE SYSTEM DISORDER
  17. CAL/MAG/D3 [Concomitant]
     Indication: IMMUNE SYSTEM DISORDER
     Dosage: 1K/500/400
  18. ASPIRIN [Concomitant]
  19. COD LIVER OIL [Concomitant]
     Indication: IMMUNE SYSTEM DISORDER
     Dosage: 1 TSP

REACTIONS (1)
  - RADIATION PNEUMONITIS [None]
